FAERS Safety Report 13031604 (Version 1)
Quarter: 2016Q4

REPORT INFORMATION
  Report Type: Spontaneous
  Country: FR (occurrence: FR)
  Receive Date: 20161215
  Receipt Date: 20161215
  Transmission Date: 20170207
  Serious: Yes (Hospitalization)
  Sender: FDA-Public Use
  Company Number: FR-BAYER-2016-228889

PATIENT
  Age: 62 Year
  Sex: Male

DRUGS (10)
  1. AMBISOME [Concomitant]
     Active Substance: AMPHOTERICIN B
     Dosage: UNK
     Route: 042
     Dates: start: 20160902, end: 20160910
  2. TAZOCILLINE [Concomitant]
     Active Substance: PIPERACILLIN SODIUM\TAZOBACTAM SODIUM
     Dosage: UNK
     Route: 042
     Dates: start: 20160902, end: 20160910
  3. VANCOMYCINE PCH [Concomitant]
     Active Substance: VANCOMYCIN
     Dosage: UNK
     Route: 042
     Dates: start: 20160902, end: 20160910
  4. VINDESINE [Concomitant]
     Active Substance: VINDESINE
     Dosage: UNK
     Route: 042
     Dates: start: 20160922, end: 20160922
  5. AMLODIPINE [Concomitant]
     Active Substance: AMLODIPINE BESYLATE
     Dosage: UNK
     Route: 048
     Dates: start: 20160906, end: 20160919
  6. CIFLOX 100/50 MG/ML [Suspect]
     Active Substance: CIPROFLOXACIN HYDROCHLORIDE
     Indication: ACUTE LYMPHOCYTIC LEUKAEMIA
     Dosage: UNK
     Route: 042
     Dates: start: 20160910, end: 20160915
  7. METHOTREXATE. [Suspect]
     Active Substance: METHOTREXATE
     Indication: ACUTE LYMPHOCYTIC LEUKAEMIA
     Dosage: UNK
     Route: 037
     Dates: start: 20160829, end: 20160829
  8. ZELITREX [Concomitant]
     Active Substance: VALACYCLOVIR HYDROCHLORIDE
     Dosage: 2 DF, QD
     Route: 048
  9. MEROPENEM. [Concomitant]
     Active Substance: MEROPENEM
     Dosage: UNK
     Route: 042
     Dates: start: 20160910, end: 20161001
  10. AMIKLIN [Concomitant]
     Active Substance: AMIKACIN SULFATE
     Dosage: UNK
     Route: 042
     Dates: start: 20160909, end: 20160924

REACTIONS (3)
  - Cholangitis [Not Recovered/Not Resolved]
  - Cholestasis [Not Recovered/Not Resolved]
  - Hepatic steatosis [Not Recovered/Not Resolved]

NARRATIVE: CASE EVENT DATE: 20160921
